FAERS Safety Report 8428130-8 (Version None)
Quarter: 2012Q2

REPORT INFORMATION
  Report Type: 
  Country: None (occurrence: None)
  Receive Date: 20120611
  Receipt Date: 20120531
  Transmission Date: 20120825
  Serious: Yes (Other)
  Sender: FDA-Public Use
  Company Number: US-ASTRAZENECA-2010SE48473

PATIENT
  Age: 72 Year
  Sex: Female

DRUGS (2)
  1. NEXIUM [Suspect]
     Route: 048
  2. PRILOSEC [Suspect]
     Dosage: TWICE A DAY
     Route: 048

REACTIONS (6)
  - MUSCULOSKELETAL STIFFNESS [None]
  - GASTROINTESTINAL VIRAL INFECTION [None]
  - MALAISE [None]
  - DRUG EFFECT DECREASED [None]
  - OESOPHAGEAL HAEMORRHAGE [None]
  - DRUG DOSE OMISSION [None]
